FAERS Safety Report 12846214 (Version 2)
Quarter: 2016Q4

REPORT INFORMATION
  Report Type: Spontaneous
  Country: TR (occurrence: TR)
  Receive Date: 20161014
  Receipt Date: 20161023
  Transmission Date: 20170207
  Serious: Yes (Life-Threatening)
  Sender: FDA-Public Use
  Company Number: TR-009507513-1610TUR000798

PATIENT
  Age: 8 Year
  Sex: Male
  Weight: 20.3 kg

DRUGS (1)
  1. NOXAFIL [Suspect]
     Active Substance: POSACONAZOLE
     Dosage: 4X1 CUP
     Route: 048
     Dates: start: 20160823, end: 20160824

REACTIONS (2)
  - Rash vesicular [Recovered/Resolved]
  - Product use issue [Unknown]

NARRATIVE: CASE EVENT DATE: 20160823
